FAERS Safety Report 16213983 (Version 1)
Quarter: 2019Q2

REPORT INFORMATION
  Report Type: Spontaneous
  Country: US (occurrence: US)
  Receive Date: 20190418
  Receipt Date: 20190418
  Transmission Date: 20190711
  Serious: No
  Sender: FDA-Public Use
  Company Number: US-GLAXOSMITHKLINE-US2019065767

PATIENT
  Age: 77 Year
  Sex: Female

DRUGS (1)
  1. FLONASE [Suspect]
     Active Substance: FLUTICASONE PROPIONATE
     Indication: HYPERSENSITIVITY
     Dosage: UNK
     Dates: start: 201904

REACTIONS (5)
  - Therapeutic product effect delayed [Unknown]
  - Swollen tear duct [Unknown]
  - Lacrimal disorder [Unknown]
  - Ocular hyperaemia [Unknown]
  - Sinusitis [Unknown]
